FAERS Safety Report 6185252-2 (Version None)
Quarter: 2009Q2

REPORT INFORMATION
  Report Type: 
  Country: None (occurrence: None)
  Receive Date: 20090507
  Receipt Date: 20090421
  Transmission Date: 20091009
  Serious: Yes (Death)
  Sender: FDA-Public Use
  Company Number: 000712

PATIENT
  Age: 59 Year
  Sex: Male

DRUGS (7)
  1. PROSTAVASIN /00501501/ (PROSTAVASIN) [Suspect]
     Indication: PERIPHERAL ARTERIAL OCCLUSIVE DISEASE
     Dosage: (1 VIAL INTRA-ARTERIAL)
     Route: 013
  2. . [Concomitant]
  3. CLEXANE (CLEXANE) (NOT SPECIFIED) [Suspect]
  4. HEPARIN [Suspect]
     Dosage: (5000IE ONCE)
  5. ASS (ASS) (NOT SPECIFED) [Suspect]
     Dosage: (100 MG, 100 MG ONCE) ; (100 MG QD, 100MG DAILY)
  6. CLOPIDOGREL [Suspect]
     Dosage: (75 MG, 75MG ONCE)
  7. CILOSTAZOL [Suspect]
     Dosage: (100 MG BID)

REACTIONS (2)
  - CARDIAC DEATH [None]
  - MYOCARDIAL INFARCTION [None]
